FAERS Safety Report 18543439 (Version 6)
Quarter: 2021Q2

REPORT INFORMATION
  Report Type: Report from Study
  Country: DE (occurrence: DE)
  Receive Date: 20201124
  Receipt Date: 20210621
  Transmission Date: 20210717
  Serious: Yes (Hospitalization, Other)
  Sender: FDA-Public Use
  Company Number: DE-TAKEDA-2020TUS050122

PATIENT
  Age: 72 Year
  Sex: Male

DRUGS (32)
  1. TEDUGLUTIDE [Suspect]
     Active Substance: TEDUGLUTIDE
     Dosage: 4.0 MILLIGRAM (0.05 MG/KG, 7 TED DOSES PER WEEK)
     Route: 065
     Dates: start: 20181204, end: 2020
  2. TEDUGLUTIDE [Suspect]
     Active Substance: TEDUGLUTIDE
     Dosage: 5.0 MILLIGRAM (0.05 MG/KG, 7 TED DOSES PER WEEK)
     Route: 065
     Dates: start: 2020
  3. TEDUGLUTIDE [Suspect]
     Active Substance: TEDUGLUTIDE
     Dosage: 5.0 MILLIGRAM (0.05 MG/KG, 7 TED DOSES PER WEEK)
     Route: 065
     Dates: start: 2020
  4. TEDUGLUTIDE [Suspect]
     Active Substance: TEDUGLUTIDE
     Indication: SHORT-BOWEL SYNDROME
     Dosage: 4.25 MILLIGRAM (0.05 MG/KG, 7 TED DOSES PER WEEK)
     Route: 065
     Dates: start: 20170503, end: 20170705
  5. TEDUGLUTIDE [Suspect]
     Active Substance: TEDUGLUTIDE
     Indication: SHORT-BOWEL SYNDROME
     Dosage: 4.25 MILLIGRAM (0.05 MG/KG, 7 TED DOSES PER WEEK)
     Route: 065
     Dates: start: 20170503, end: 20170705
  6. TEDUGLUTIDE [Suspect]
     Active Substance: TEDUGLUTIDE
     Indication: SHORT-BOWEL SYNDROME
     Dosage: 4.25 MILLIGRAM (0.05 MG/KG, 7 TED DOSES PER WEEK)
     Route: 065
     Dates: start: 20170503, end: 20170705
  7. TEDUGLUTIDE [Suspect]
     Active Substance: TEDUGLUTIDE
     Dosage: 2.13 MILLIGRAM (0.05 MG/KG, 7 TED DOSES PER WEEK)
     Route: 065
     Dates: start: 20170706, end: 201710
  8. TEDUGLUTIDE [Suspect]
     Active Substance: TEDUGLUTIDE
     Dosage: 2.13 MILLIGRAM (0.05 MG/KG, 7 TED DOSES PER WEEK)
     Route: 065
     Dates: start: 20170706, end: 201710
  9. TEDUGLUTIDE [Suspect]
     Active Substance: TEDUGLUTIDE
     Dosage: 2.13 MILLIGRAM (0.05 MG/KG, 7 TED DOSES PER WEEK)
     Route: 065
     Dates: start: 20170706, end: 201710
  10. TEDUGLUTIDE [Suspect]
     Active Substance: TEDUGLUTIDE
     Dosage: 3.0 MILLIGRAM (0.05 MG/KG, 7 TED DOSES PER WEEK)
     Route: 065
     Dates: start: 201710, end: 201711
  11. TEDUGLUTIDE [Suspect]
     Active Substance: TEDUGLUTIDE
     Dosage: 3.0 MILLIGRAM (0.05 MG/KG, 7 TED DOSES PER WEEK)
     Route: 065
     Dates: start: 201710, end: 201711
  12. TEDUGLUTIDE [Suspect]
     Active Substance: TEDUGLUTIDE
     Dosage: 2.0 MILLIGRAM (0.05 MG/KG, 7 TED DOSES PER WEEK)
     Route: 065
     Dates: start: 201711, end: 201806
  13. TEDUGLUTIDE [Suspect]
     Active Substance: TEDUGLUTIDE
     Dosage: 2.0 MILLIGRAM (0.05 MG/KG, 7 TED DOSES PER WEEK)
     Route: 065
     Dates: start: 201711, end: 201806
  14. TEDUGLUTIDE [Suspect]
     Active Substance: TEDUGLUTIDE
     Indication: SHORT-BOWEL SYNDROME
     Dosage: 4.25 MILLIGRAM (0.05 MG/KG, 7 TED DOSES PER WEEK)
     Route: 065
     Dates: start: 20170503, end: 20170705
  15. TEDUGLUTIDE [Suspect]
     Active Substance: TEDUGLUTIDE
     Dosage: 2.13 MILLIGRAM (0.05 MG/KG, 7 TED DOSES PER WEEK)
     Route: 065
     Dates: start: 20170706, end: 201710
  16. TEDUGLUTIDE [Suspect]
     Active Substance: TEDUGLUTIDE
     Dosage: 3.0 MILLIGRAM (0.05 MG/KG, 7 TED DOSES PER WEEK)
     Route: 065
     Dates: start: 201806, end: 201812
  17. TEDUGLUTIDE [Suspect]
     Active Substance: TEDUGLUTIDE
     Dosage: 3.0 MILLIGRAM (0.05 MG/KG, 7 TED DOSES PER WEEK)
     Route: 065
     Dates: start: 201806, end: 201812
  18. CYANOCOBALAMIN. [Concomitant]
     Active Substance: CYANOCOBALAMIN
     Indication: VITAMIN B12 DEFICIENCY
     Dosage: 1 MILLIGRAM, MONTHLY
     Route: 058
     Dates: start: 20201030
  19. TEDUGLUTIDE [Suspect]
     Active Substance: TEDUGLUTIDE
     Dosage: 2.0 MILLIGRAM (0.05 MG/KG, 7 TED DOSES PER WEEK)
     Route: 065
     Dates: start: 201711, end: 201806
  20. TEDUGLUTIDE [Suspect]
     Active Substance: TEDUGLUTIDE
     Dosage: 5.0 MILLIGRAM (0.05 MG/KG, 7 TED DOSES PER WEEK)
     Route: 065
     Dates: start: 2020
  21. TEDUGLUTIDE [Suspect]
     Active Substance: TEDUGLUTIDE
     Dosage: 5.0 MILLIGRAM (0.05 MG/KG, 7 TED DOSES PER WEEK)
     Route: 065
     Dates: start: 2020
  22. TEDUGLUTIDE [Suspect]
     Active Substance: TEDUGLUTIDE
     Dosage: 3.0 MILLIGRAM (0.05 MG/KG, 7 TED DOSES PER WEEK)
     Route: 065
     Dates: start: 201710, end: 201711
  23. TEDUGLUTIDE [Suspect]
     Active Substance: TEDUGLUTIDE
     Dosage: 2.0 MILLIGRAM (0.05 MG/KG, 7 TED DOSES PER WEEK)
     Route: 065
     Dates: start: 201711, end: 201806
  24. TEDUGLUTIDE [Suspect]
     Active Substance: TEDUGLUTIDE
     Dosage: 3.0 MILLIGRAM (0.05 MG/KG, 7 TED DOSES PER WEEK)
     Route: 065
     Dates: start: 201806, end: 201812
  25. TEDUGLUTIDE [Suspect]
     Active Substance: TEDUGLUTIDE
     Dosage: 3.0 MILLIGRAM (0.05 MG/KG, 7 TED DOSES PER WEEK)
     Route: 065
     Dates: start: 201806, end: 201812
  26. TEDUGLUTIDE [Suspect]
     Active Substance: TEDUGLUTIDE
     Dosage: 4.0 MILLIGRAM (0.05 MG/KG, 7 TED DOSES PER WEEK)
     Route: 065
     Dates: start: 20181204, end: 2020
  27. ATORVASTATIN [Concomitant]
     Active Substance: ATORVASTATIN
     Indication: BLOOD CHOLESTEROL INCREASED
     Dosage: 20 MILLIGRAM, QD
     Route: 048
     Dates: start: 20201030
  28. TAZOBAC [Concomitant]
     Active Substance: PIPERACILLIN SODIUM\TAZOBACTAM SODIUM
     Indication: INFECTION
     Dosage: UNK
     Route: 042
     Dates: start: 20201030, end: 20201104
  29. TEDUGLUTIDE [Suspect]
     Active Substance: TEDUGLUTIDE
     Dosage: 3.0 MILLIGRAM (0.05 MG/KG, 7 TED DOSES PER WEEK)
     Route: 065
     Dates: start: 201710, end: 201711
  30. TEDUGLUTIDE [Suspect]
     Active Substance: TEDUGLUTIDE
     Dosage: 4.0 MILLIGRAM (0.05 MG/KG, 7 TED DOSES PER WEEK)
     Route: 065
     Dates: start: 20181204, end: 2020
  31. TEDUGLUTIDE [Suspect]
     Active Substance: TEDUGLUTIDE
     Dosage: 4.0 MILLIGRAM (0.05 MG/KG, 7 TED DOSES PER WEEK)
     Route: 065
     Dates: start: 20181204, end: 2020
  32. PIPERACILLIN. [Concomitant]
     Active Substance: PIPERACILLIN SODIUM
     Indication: INFECTION
     Dosage: UNK
     Route: 065
     Dates: start: 20201030, end: 20201104

REACTIONS (4)
  - Hypocalcaemia [Not Recovered/Not Resolved]
  - Blood creatine increased [Not Recovered/Not Resolved]
  - Infection [Recovered/Resolved]
  - Hyperkalaemia [Recovered/Resolved]

NARRATIVE: CASE EVENT DATE: 20201030
